FAERS Safety Report 20644329 (Version 1)
Quarter: 2022Q1

REPORT INFORMATION
  Report Type: Spontaneous
  Country: US (occurrence: US)
  Receive Date: 20220328
  Receipt Date: 20220328
  Transmission Date: 20220424
  Serious: Yes (Other)
  Sender: FDA-Public Use
  Company Number: US-INCYTE CORPORATION-2022IN002755

PATIENT

DRUGS (1)
  1. JAKAFI [Suspect]
     Active Substance: RUXOLITINIB
     Indication: Polycythaemia vera
     Dosage: 5 MILLIGRAM, BID
     Route: 048
     Dates: start: 20220304

REACTIONS (8)
  - Suicidal ideation [Unknown]
  - Laboratory test abnormal [Unknown]
  - Bone pain [Unknown]
  - Arthralgia [Unknown]
  - Pyrexia [Unknown]
  - Depression [Unknown]
  - Apathy [Unknown]
  - Affect lability [Unknown]
